FAERS Safety Report 6975161-0 (Version None)
Quarter: 2010Q3

REPORT INFORMATION
  Report Type: 
  Country: None (occurrence: None)
  Receive Date: 20100910
  Receipt Date: 20090223
  Transmission Date: 20110219
  Serious: No
  Sender: FDA-Public Use
  Company Number: US-WYE-H08164809

PATIENT
  Sex: Female
  Weight: 68.1 kg

DRUGS (5)
  1. PRISTIQ [Suspect]
     Indication: ANXIETY
     Route: 048
     Dates: start: 20080601, end: 20090207
  2. PRISTIQ [Suspect]
     Dosage: ^SPLIT TABLET IN HALF PER HER HCP'S RECOMMENDATION^
     Route: 048
     Dates: start: 20090208, end: 20090210
  3. PRISTIQ [Suspect]
     Route: 048
     Dates: start: 20090210, end: 20090219
  4. LEVOTHYROXINE SODIUM [Concomitant]
  5. DEPO-PROVERA [Concomitant]

REACTIONS (8)
  - AFFECT LABILITY [None]
  - ARTHRALGIA [None]
  - DRUG WITHDRAWAL SYNDROME [None]
  - FEELING OF BODY TEMPERATURE CHANGE [None]
  - HEADACHE [None]
  - MALAISE [None]
  - NAUSEA [None]
  - VERTIGO [None]
